FAERS Safety Report 5192956-7 (Version None)
Quarter: 2006Q4

REPORT INFORMATION
  Report Type: 
  Country: None (occurrence: None)
  Receive Date: 20061228
  Receipt Date: 20060320
  Transmission Date: 20070319
  Serious: No
  Sender: FDA-Public Use
  Company Number: US-GLAXOSMITHKLINE-A0598236A

PATIENT
  Age: 45 Year
  Sex: Female

DRUGS (3)
  1. FLUTICASONE PROPIONATE [Suspect]
     Dosage: 2SPR PER DAY
     Route: 045
     Dates: start: 20060313, end: 20060318
  2. HYOSCYAMINE [Suspect]
     Dosage: .375MG TWICE PER DAY
     Route: 048
     Dates: start: 20060101, end: 20060319
  3. IBUPROFEN [Concomitant]

REACTIONS (8)
  - ASTHENIA [None]
  - DIZZINESS [None]
  - DRUG INTERACTION [None]
  - FATIGUE [None]
  - GASTROINTESTINAL PAIN [None]
  - HEADACHE [None]
  - NAUSEA [None]
  - SINUS HEADACHE [None]
